FAERS Safety Report 5717145-6 (Version None)
Quarter: 2008Q2

REPORT INFORMATION
  Report Type: 
  Country: None (occurrence: None)
  Receive Date: 20080424
  Receipt Date: 20080416
  Transmission Date: 20081010
  Serious: Yes (Hospitalization)
  Sender: FDA-Public Use
  Company Number: FR-PFIZER INC-2008033263

PATIENT
  Sex: Female

DRUGS (3)
  1. ALDACTONE [Suspect]
     Indication: HYPERTENSION
     Route: 048
  2. CATAPRES [Suspect]
  3. PARACETAMOL [Concomitant]

REACTIONS (4)
  - CONFUSIONAL STATE [None]
  - FALL [None]
  - HYPONATRAEMIA [None]
  - MALAISE [None]
